FAERS Safety Report 18669014 (Version 1)
Quarter: 2020Q4

REPORT INFORMATION
  Report Type: Spontaneous
  Country: US (occurrence: US)
  Receive Date: 20201227
  Receipt Date: 20201227
  Transmission Date: 20210114
  Serious: Yes (Other)
  Sender: FDA-Public Use
  Company Number: None

PATIENT
  Age: 71 Year
  Sex: Female
  Weight: 60.3 kg

DRUGS (19)
  1. FUROSEMIDE. [Concomitant]
     Active Substance: FUROSEMIDE
  2. NAPROXEN. [Concomitant]
     Active Substance: NAPROXEN
  3. NORTRIPTYLINE HCL 50 MG [Suspect]
     Active Substance: NORTRIPTYLINE HYDROCHLORIDE
     Indication: INSOMNIA
     Dosage: ?          QUANTITY:1 CAPSULE(S);?
     Route: 048
     Dates: start: 20201218, end: 20201221
  4. HUMALOG [Concomitant]
     Active Substance: INSULIN LISPRO
  5. ASPIRIN. [Concomitant]
     Active Substance: ASPIRIN
  6. OTC ANTACIDS [Concomitant]
  7. DIPHENHYDRAMINE. [Concomitant]
     Active Substance: DIPHENHYDRAMINE
  8. SALONPAS PAIN RELIEF [Concomitant]
     Active Substance: MENTHOL\METHYL SALICYLATE
  9. HUMULIN N [Concomitant]
     Active Substance: INSULIN HUMAN
  10. VIT D [Concomitant]
     Active Substance: VITAMIN D NOS
  11. METOPROLOL. [Concomitant]
     Active Substance: METOPROLOL
  12. NALTREXONE [Concomitant]
     Active Substance: NALTREXONE
  13. EXEDRIN [Concomitant]
  14. VIT B [Concomitant]
     Active Substance: VITAMIN B
  15. ROPINIROLE. [Concomitant]
     Active Substance: ROPINIROLE
  16. MIRALAX [Concomitant]
     Active Substance: POLYETHYLENE GLYCOL 3350
  17. AREDS 2 [Concomitant]
     Active Substance: MINERALS\VITAMINS
  18. DULOXETINE. [Concomitant]
     Active Substance: DULOXETINE
  19. ARMOUR THYROID [Concomitant]
     Active Substance: THYROID, PORCINE

REACTIONS (8)
  - Nausea [None]
  - Hiccups [None]
  - Pain in extremity [None]
  - Ataxia [None]
  - Vomiting [None]
  - Gait disturbance [None]
  - Dyspepsia [None]
  - Muscular weakness [None]

NARRATIVE: CASE EVENT DATE: 20201218
